FAERS Safety Report 19945704 (Version 2)
Quarter: 2023Q1

REPORT INFORMATION
  Report Type: Spontaneous
  Country: DE (occurrence: DE)
  Receive Date: 20211012
  Receipt Date: 20230207
  Transmission Date: 20230418
  Serious: Yes (Hospitalization)
  Sender: FDA-Public Use
  Company Number: DE-ADRED-05808-01

PATIENT
  Age: 75 Year
  Sex: Male
  Weight: 73 kg

DRUGS (22)
  1. BORTEZOMIB [Suspect]
     Active Substance: BORTEZOMIB
     Indication: Product used for unknown indication
     Dosage: ACCORDING TO SCHEME,SOL FOR INJECTION/INFUSION
     Route: 042
  2. DOXORUBICIN [Suspect]
     Active Substance: DOXORUBICIN
     Indication: Product used for unknown indication
     Dosage: ACCORDING TO SCHEME,SOL FOR INJECTION/INFUSION
     Route: 042
  3. CYCLOPHOSPHAMIDE [Suspect]
     Active Substance: CYCLOPHOSPHAMIDE
     Indication: Product used for unknown indication
     Dosage: ACCORDING TO SCHEME,SOL FOR INJECTION/INFUSION
     Route: 042
  4. LIPEGFILGRASTIM [Suspect]
     Active Substance: LIPEGFILGRASTIM
     Indication: Product used for unknown indication
     Dosage: ACCORDING TO SCHEME,SOL FOR INJECTION/INFUSION
     Route: 042
  5. PREDNISOLONE [Suspect]
     Active Substance: PREDNISOLONE
     Indication: Product used for unknown indication
     Dosage: ACCORDING TO SCHEME,SOL FOR INJECTION/INFUSION
     Route: 042
  6. RITUXIMAB [Suspect]
     Active Substance: RITUXIMAB
     Indication: Product used for unknown indication
     Dosage: ACCORDING TO SCHEME,SOL FOR INJECTION/INFUSION
     Route: 042
  7. ASPIRIN [Concomitant]
     Active Substance: ASPIRIN
     Dosage: 100 MILLIGRAM (0-1-0-0)
     Route: 048
  8. ACYCLOVIR [Concomitant]
     Active Substance: ACYCLOVIR
     Dosage: 200 MILLIGRAM (2-2-2-0)
     Route: 048
  9. ALLOPURINOL [Concomitant]
     Active Substance: ALLOPURINOL
     Dosage: 300 MILLIGRAM (1-0-0-0)
     Route: 048
  10. AMPHOTERICIN B [Concomitant]
     Active Substance: AMPHOTERICIN B
     Dosage: 1-1-1-1, TABLET
     Route: 048
  11. BISOPROLOL [Concomitant]
     Active Substance: BISOPROLOL
     Dosage: 5 MILLIGRAM (1-0-0-0), TABLET
     Route: 048
  12. SULFAMETHOXAZOLE\TRIMETHOPRIM [Concomitant]
     Active Substance: SULFAMETHOXAZOLE\TRIMETHOPRIM
     Dosage: 800|160 MG,MONDAY WEDNESDAY FRIDAY ONE TABLET
     Route: 048
  13. FUROSEMIDE [Concomitant]
     Active Substance: FUROSEMIDE
     Dosage: 40 MILLIGRAM (1-0-0-0), TABLET
     Route: 048
  14. INDISCHE FLOHSAMENSCHALEN [Concomitant]
     Dosage: 3.25/5G, IF NECESSARY, A SACHET TID
     Route: 048
  15. OLODATEROL HYDROCHLORIDE\TIOTROPIUM BROMIDE MONOHYDRATE [Concomitant]
     Active Substance: OLODATEROL HYDROCHLORIDE\TIOTROPIUM BROMIDE MONOHYDRATE
     Dosage: METERED DOSE INHALER(2-0-0-0)
     Route: 055
  16. METAMIZOLE [Concomitant]
     Active Substance: METAMIZOLE
     Dosage: 500MG (1-1-1-1), TABLET
     Route: 048
  17. MORPHINE [Concomitant]
     Active Substance: MORPHINE
     Dosage: MORNING 8 DROPS AS NEEDED, CAPSULES
     Route: 048
  18. PANTOPRAZOLE SODIUM [Concomitant]
     Active Substance: PANTOPRAZOLE SODIUM
     Dosage: 40MG (1-0-0-0), TABLET
     Route: 048
  19. RAMIPRIL [Concomitant]
     Active Substance: RAMIPRIL
     Dosage: 5 MG(1-0-1-0), TABLET
     Route: 048
  20. SIMVASTATIN [Concomitant]
     Active Substance: SIMVASTATIN
     Dosage: 20 MG (0-0-1-0), TABLET
     Route: 048
  21. ZOPICLONE [Concomitant]
     Active Substance: ZOPICLONE
     Dosage: 7.5 MG(0-0-0-1), TABLET
     Route: 048
  22. MUCOFALK APPLE [Concomitant]
     Dosage: PRN 3 TIMES A BAG PER DAY, BAG
     Route: 065

REACTIONS (5)
  - General physical health deterioration [Unknown]
  - Pyrexia [Unknown]
  - Herpes zoster [Unknown]
  - Headache [Unknown]
  - Infection [Unknown]
